FAERS Safety Report 5853650-X (Version None)
Quarter: 2008Q3

REPORT INFORMATION
  Report Type: 
  Country: None (occurrence: None)
  Receive Date: 20080822
  Receipt Date: 20080815
  Transmission Date: 20090109
  Serious: Yes (Other)
  Sender: FDA-Public Use
  Company Number: US-JNJFOC-20080804059

PATIENT
  Age: 44 Year
  Sex: Female
  Weight: 56.7 kg

DRUGS (3)
  1. TYLENOL (CAPLET) [Suspect]
     Indication: FIBROMYALGIA
     Route: 048
  2. TYLENOL (CAPLET) [Suspect]
     Indication: ARTHRITIS
     Route: 048
  3. MULTI-VITAMIN [Concomitant]
     Route: 048

REACTIONS (3)
  - ABDOMINAL DISTENSION [None]
  - BLOOD URINE PRESENT [None]
  - DYSPEPSIA [None]
